FAERS Safety Report 14140355 (Version 1)
Quarter: 2017Q4

REPORT INFORMATION
  Report Type: Spontaneous
  Country: US (occurrence: US)
  Receive Date: 20171030
  Receipt Date: 20171030
  Transmission Date: 20180321
  Serious: No
  Sender: FDA-Public Use
  Company Number: US-TEVA-781683USA

PATIENT

DRUGS (1)
  1. GUANFACINE. [Suspect]
     Active Substance: GUANFACINE

REACTIONS (4)
  - Headache [Unknown]
  - Gastrointestinal pain [Unknown]
  - Drug ineffective [Unknown]
  - Tinnitus [Unknown]
